FAERS Safety Report 7493722-X (Version None)
Quarter: 2011Q2

REPORT INFORMATION
  Report Type: 
  Country: None (occurrence: None)
  Receive Date: 20110520
  Receipt Date: 20110517
  Transmission Date: 20111010
  Serious: Yes (Other)
  Sender: FDA-Public Use
  Company Number: ZA-PFIZER INC-2011107495

PATIENT
  Age: 32 Year
  Sex: Male

DRUGS (2)
  1. VARENICLINE TARTRATE [Suspect]
     Dosage: 0.5 MG, 2X/DAY
     Dates: start: 20110512, end: 20110514
  2. VARENICLINE TARTRATE [Suspect]
     Dosage: 0.5 MG, 1X/DAY
     Route: 048
     Dates: start: 20110509, end: 20110511

REACTIONS (6)
  - PRURITUS [None]
  - CHEST PAIN [None]
  - HYPERSENSITIVITY [None]
  - RASH GENERALISED [None]
  - EYE SWELLING [None]
  - OEDEMA PERIPHERAL [None]
